FAERS Safety Report 12863609 (Version 1)
Quarter: 2016Q4

REPORT INFORMATION
  Report Type: Spontaneous
  Country: US (occurrence: US)
  Receive Date: 20161019
  Receipt Date: 20161019
  Transmission Date: 20170207
  Serious: Yes (Other)
  Sender: FDA-Public Use
  Company Number: US-SAOL THERAPEUTICS-2016SAO00840

PATIENT
  Age: 44 Year
  Sex: Female

DRUGS (1)
  1. LIORESAL [Suspect]
     Active Substance: BACLOFEN
     Dosage: 400 ?G, \DAY
     Route: 037

REACTIONS (2)
  - Therapy non-responder [Recovered/Resolved]
  - Muscle spasticity [Recovered/Resolved]

NARRATIVE: CASE EVENT DATE: 20160908
